FAERS Safety Report 9290508 (Version 1)
Quarter: 2013Q2

REPORT INFORMATION
  Report Type: Report from Study
  Country: JP (occurrence: JP)
  Receive Date: 20130515
  Receipt Date: 20130515
  Transmission Date: 20140414
  Serious: Yes (Hospitalization)
  Sender: FDA-Public Use
  Company Number: JP-ROCHE-1223212

PATIENT
  Age: 70 Year
  Sex: Male

DRUGS (17)
  1. METHOXY POLYETHYLENE GLYCOL-EPOETIN BETA [Suspect]
     Indication: NEPHROGENIC ANAEMIA
     Route: 042
     Dates: start: 20120220, end: 20120220
  2. METHOXY POLYETHYLENE GLYCOL-EPOETIN BETA [Suspect]
     Indication: NEPHROGENIC ANAEMIA
     Route: 042
     Dates: start: 20120319, end: 20120319
  3. METHOXY POLYETHYLENE GLYCOL-EPOETIN BETA [Suspect]
     Indication: NEPHROGENIC ANAEMIA
     Route: 042
     Dates: start: 20120416, end: 20120416
  4. METHOXY POLYETHYLENE GLYCOL-EPOETIN BETA [Suspect]
     Indication: NEPHROGENIC ANAEMIA
     Route: 042
     Dates: start: 20120521, end: 20120806
  5. METHOXY POLYETHYLENE GLYCOL-EPOETIN BETA [Suspect]
     Indication: NEPHROGENIC ANAEMIA
     Route: 042
     Dates: start: 20120820, end: 20120903
  6. METHOXY POLYETHYLENE GLYCOL-EPOETIN BETA [Suspect]
     Indication: NEPHROGENIC ANAEMIA
     Route: 042
     Dates: start: 20120917, end: 20121001
  7. METHOXY POLYETHYLENE GLYCOL-EPOETIN BETA [Suspect]
     Indication: NEPHROGENIC ANAEMIA
     Route: 042
     Dates: start: 20121015, end: 20121203
  8. METHOXY POLYETHYLENE GLYCOL-EPOETIN BETA [Suspect]
     Indication: NEPHROGENIC ANAEMIA
     Route: 042
     Dates: start: 20121217
  9. CALTAN [Concomitant]
     Indication: DIABETIC NEPHROPATHY
     Route: 048
     Dates: end: 20120615
  10. CALTAN [Concomitant]
     Indication: DIABETIC NEPHROPATHY
     Route: 048
     Dates: start: 20120611, end: 20120708
  11. CALTAN [Concomitant]
     Indication: DIABETIC NEPHROPATHY
     Route: 048
     Dates: start: 20120709, end: 20120819
  12. CALTAN [Concomitant]
     Indication: DIABETIC NEPHROPATHY
     Route: 048
     Dates: start: 20120820, end: 20130120
  13. PLAVIX [Concomitant]
     Route: 048
  14. BAYASPIRIN [Concomitant]
     Route: 048
  15. DIOVAN [Concomitant]
     Route: 048
     Dates: start: 20120116
  16. NORVASC [Concomitant]
     Route: 048
  17. CARDENALIN [Concomitant]
     Route: 048
     Dates: end: 20121126

REACTIONS (1)
  - Cerebral infarction [Recovered/Resolved]
